FAERS Safety Report 19377382 (Version 1)
Quarter: 2021Q2

REPORT INFORMATION
  Report Type: Spontaneous
  Country: DE (occurrence: DE)
  Receive Date: 20210604
  Receipt Date: 20210604
  Transmission Date: 20210717
  Serious: Yes (Hospitalization, Other)
  Sender: FDA-Public Use
  Company Number: DE-SA-2021SA183742

PATIENT
  Age: 52 Year
  Sex: Male
  Weight: 84 kg

DRUGS (5)
  1. FLUOROURACIL. [Suspect]
     Active Substance: FLUOROURACIL
     Dosage: ACCORDING TO THE SCHEME, INJECTION / INFUSION SOLUTION
  2. ATENOLOL. [Concomitant]
     Active Substance: ATENOLOL
     Dosage: 50 MG, 3?0?0?0, TABLETS
  3. OXALIPLATIN. [Suspect]
     Active Substance: OXALIPLATIN
     Dosage: ACCORDING TO THE SCHEME, INJECTION / INFUSION SOLUTION
  4. FOLINIC ACID [Suspect]
     Active Substance: LEUCOVORIN
     Dosage: ACCORDING TO THE SCHEME, INJECTION / INFUSION SOLUTION
  5. BEVACIZUMAB. [Suspect]
     Active Substance: BEVACIZUMAB
     Dosage: ACCORDING TO THE SCHEME, INJECTION / INFUSION SOLUTION

REACTIONS (4)
  - Haemoptysis [Not Recovered/Not Resolved]
  - Vomiting [Not Recovered/Not Resolved]
  - Haematemesis [Not Recovered/Not Resolved]
  - Cough [Not Recovered/Not Resolved]
